FAERS Safety Report 21537715 (Version 1)
Quarter: 2022Q4

REPORT INFORMATION
  Report Type: Spontaneous
  Country: US (occurrence: US)
  Receive Date: 20221101
  Receipt Date: 20221101
  Transmission Date: 20230113
  Serious: No
  Sender: FDA-Public Use
  Company Number: US-SA-SAC20221027001406

PATIENT
  Age: 33 Year

DRUGS (1)
  1. ALDURAZYME [Suspect]
     Active Substance: LARONIDASE
     Indication: Mucopolysaccharidosis I
     Dosage: UNK
     Route: 050

REACTIONS (3)
  - Swelling [Not Recovered/Not Resolved]
  - Malaise [Not Recovered/Not Resolved]
  - Infusion site extravasation [Unknown]

NARRATIVE: CASE EVENT DATE: 20221001
